FAERS Safety Report 10099640 (Version 2)
Quarter: 2014Q2

REPORT INFORMATION
  Report Type: Spontaneous
  Country: US (occurrence: US)
  Receive Date: 20140423
  Receipt Date: 20140423
  Transmission Date: 20141212
  Serious: No
  Sender: FDA-Public Use
  Company Number: US-GILEAD-2013-0070564

PATIENT
  Sex: Male

DRUGS (1)
  1. LETAIRIS [Suspect]
     Indication: PULMONARY HYPERTENSION
     Dosage: 5 MG, QD
     Route: 048

REACTIONS (4)
  - Exercise tolerance decreased [Recovering/Resolving]
  - Dyspnoea [Recovering/Resolving]
  - Swelling [Recovering/Resolving]
  - Fluid retention [Recovering/Resolving]
